FAERS Safety Report 10155635 (Version 1)
Quarter: 2014Q2

REPORT INFORMATION
  Report Type: Report from Study
  Country: US (occurrence: US)
  Receive Date: 20140506
  Receipt Date: 20140506
  Transmission Date: 20141212
  Serious: Yes (Hospitalization)
  Sender: FDA-Public Use
  Company Number: US-GLAXOSMITHKLINE-A1066599D

PATIENT
  Age: 38 Year
  Sex: Female

DRUGS (14)
  1. TRAMETINIB [Suspect]
     Indication: CERVIX CARCINOMA
     Dosage: 1.5MG PER DAY
     Route: 048
     Dates: start: 20140313
  2. GSK2141795 [Suspect]
     Indication: CERVIX CARCINOMA
     Dosage: 50MG PER DAY
     Route: 048
     Dates: start: 20140313
  3. AMBIEN [Concomitant]
  4. CYMBALTA [Concomitant]
  5. DOCUSATE SODIUM [Concomitant]
  6. LOSARTAN [Concomitant]
  7. MAGNESIUM OXIDE [Concomitant]
  8. MORPHINE [Concomitant]
  9. PANTOPRAZOLE [Concomitant]
  10. SERTRALINE [Concomitant]
  11. TYLENOL [Concomitant]
  12. WARFARIN SODIUM [Concomitant]
  13. XANAX [Concomitant]
  14. ZOFRAN [Concomitant]

REACTIONS (1)
  - Hypomagnesaemia [Not Recovered/Not Resolved]
